FAERS Safety Report 17162059 (Version 1)
Quarter: 2019Q4

REPORT INFORMATION
  Report Type: Spontaneous
  Country: SE (occurrence: SE)
  Receive Date: 20191217
  Receipt Date: 20191217
  Transmission Date: 20200122
  Serious: Yes (Hospitalization)
  Sender: FDA-Public Use
  Company Number: SE-TEVA-2019-SE-1152685

PATIENT
  Age: 42 Year
  Sex: Female

DRUGS (3)
  1. STESOLID [Suspect]
     Active Substance: DIAZEPAM
     Dosage: 70 MG
     Route: 048
     Dates: start: 20190705, end: 20190705
  2. PROPAVAN [Suspect]
     Active Substance: PROPIOMAZINE
     Dosage: 175 MG
     Route: 048
     Dates: start: 20190705, end: 20190705
  3. LERGIGAN [PROMETHAZINE HYDROCHLORIDE] [Suspect]
     Active Substance: PROMETHAZINE HYDROCHLORIDE
     Dosage: 175 MG
     Route: 048
     Dates: start: 20190705, end: 20190705

REACTIONS (3)
  - Fatigue [Unknown]
  - Intentional overdose [Unknown]
  - Intentional self-injury [Unknown]

NARRATIVE: CASE EVENT DATE: 20190705
